FAERS Safety Report 10054892 (Version 1)
Quarter: 2014Q2

REPORT INFORMATION
  Report Type: Spontaneous
  Country: US (occurrence: US)
  Receive Date: 20140402
  Receipt Date: 20140402
  Transmission Date: 20141212
  Serious: Yes (Other)
  Sender: FDA-Public Use
  Company Number: US-GE HEALTHCARE MEDICAL DIAGNOSTICS-VISP-PR-1403S-0144

PATIENT
  Age: 60 Year
  Sex: Male
  Weight: 110.32 kg

DRUGS (12)
  1. VISIPAQUE [Suspect]
     Indication: IMPAIRED HEALING
     Route: 013
     Dates: start: 20140320, end: 20140320
  2. VISIPAQUE [Suspect]
     Indication: DIAGNOSTIC PROCEDURE
  3. INSULIN [Concomitant]
  4. LOVENOX [Concomitant]
  5. ACETAMINOPHEN [Concomitant]
  6. TYLENOL [Concomitant]
  7. OXYCODONE [Concomitant]
  8. ONDANSETRON [Concomitant]
  9. DAPTOMYCIN [Concomitant]
  10. TUMS [Concomitant]
  11. ZOFRAN [Concomitant]
  12. LISINOPRIL [Concomitant]

REACTIONS (1)
  - Pyrexia [Recovered/Resolved]
